FAERS Safety Report 22272898 (Version 2)
Quarter: 2023Q2

REPORT INFORMATION
  Report Type: Report from Study
  Country: US (occurrence: US)
  Receive Date: 20230502
  Receipt Date: 20230510
  Transmission Date: 20230721
  Serious: Yes (Other)
  Sender: FDA-Public Use
  Company Number: US-INSMED, INC.-2022-03535-US

PATIENT
  Age: 78 Year
  Sex: Female

DRUGS (5)
  1. ARIKAYCE [Suspect]
     Active Substance: AMIKACIN
     Indication: Mycobacterium avium complex infection
     Dosage: 590 MILLIGRAM, QD
     Route: 055
     Dates: start: 202212, end: 202212
  2. ARIKAYCE [Suspect]
     Active Substance: AMIKACIN
     Dosage: 590 MILLIGRAM, QOD
     Route: 055
     Dates: start: 202212, end: 2022
  3. ALBUTEROL [Concomitant]
     Active Substance: ALBUTEROL
     Indication: Product used for unknown indication
     Route: 065
  4. SODIUM CHLORIDE [Concomitant]
     Active Substance: SODIUM CHLORIDE
     Indication: Product used for unknown indication
     Route: 065
  5. AMIKACIN [Concomitant]
     Active Substance: AMIKACIN
     Indication: Product used for unknown indication
     Dosage: UNK
     Route: 042

REACTIONS (13)
  - Wheelchair user [Unknown]
  - Dyspnoea exertional [Recovered/Resolved]
  - Hypersensitivity pneumonitis [Recovered/Resolved]
  - Dyspnoea [Not Recovered/Not Resolved]
  - Throat clearing [Unknown]
  - Gait disturbance [Unknown]
  - Throat irritation [Unknown]
  - Weight decreased [Unknown]
  - Nausea [Unknown]
  - Feeling abnormal [Unknown]
  - Off label use [Unknown]
  - Device issue [Unknown]
  - Incorrect product administration duration [Unknown]

NARRATIVE: CASE EVENT DATE: 20221201
